FAERS Safety Report 8391264-0 (Version None)
Quarter: 2012Q2

REPORT INFORMATION
  Report Type: 
  Country: None (occurrence: None)
  Receive Date: 20120517
  Receipt Date: 20120509
  Transmission Date: 20120825
  Serious: Yes (Hospitalization)
  Sender: FDA-Public Use
  Company Number: 2012SP024903

PATIENT
  Age: 43 Year
  Sex: Female

DRUGS (3)
  1. PUREGON (FOLLITROPIN BETA /01348901/) [Suspect]
     Indication: OVULATION INDUCTION
     Dosage: 300 IU;QD
     Dates: start: 20120203, end: 20120214
  2. CHORIONIC GONADOTROPIN [Suspect]
     Indication: OVULATION INDUCTION
     Dosage: 5000 IU; ONCE
     Dates: start: 20120215, end: 20120215
  3. ORGALUTRAN [Concomitant]

REACTIONS (2)
  - OVARIAN HYPERSTIMULATION SYNDROME [None]
  - PELVIC VENOUS THROMBOSIS [None]
